FAERS Safety Report 25325500 (Version 1)
Quarter: 2025Q2

REPORT INFORMATION
  Report Type: Report from Study
  Country: NZ (occurrence: NZ)
  Receive Date: 20250516
  Receipt Date: 20250516
  Transmission Date: 20250716
  Serious: Yes (Other)
  Sender: PFIZER
  Company Number: NZ-KENVUE-20250502615

PATIENT
  Age: 63 Year
  Sex: Female
  Weight: 76 kg

DRUGS (8)
  1. NICOTINE [Suspect]
     Active Substance: NICOTINE
     Indication: Smoking cessation therapy
     Dates: start: 20250306, end: 20250324
  2. NICOTINE [Suspect]
     Active Substance: NICOTINE
     Dates: start: 20250306, end: 20250324
  3. NICOTINE [Suspect]
     Active Substance: NICOTINE
     Dates: start: 20250306, end: 20250324
  4. NICOTINE [Suspect]
     Active Substance: NICOTINE
     Dates: start: 20250306, end: 20250324
  5. NICOTINE [Suspect]
     Active Substance: NICOTINE
     Dates: start: 20250306, end: 20250324
  6. NICOTINE [Suspect]
     Active Substance: NICOTINE
     Dates: start: 20250306, end: 20250324
  7. AMITRIPTYLINE [Concomitant]
     Active Substance: AMITRIPTYLINE
     Indication: Neuropathy peripheral
     Dosage: 10 MILLIGRAM, ONCE A DAY, ONCE IN EVENING
     Route: 048
     Dates: start: 20250501
  8. CHOLECALCIFEROL [Concomitant]
     Active Substance: CHOLECALCIFEROL
     Indication: Vitamin D deficiency
     Dosage: 1.25 MILLIGRAM, ONCE A DAY
     Route: 048
     Dates: start: 20250501

REACTIONS (2)
  - Neuropathy peripheral [Not Recovered/Not Resolved]
  - Insomnia [Not Recovered/Not Resolved]

NARRATIVE: CASE EVENT DATE: 20250428
